FAERS Safety Report 9519525 (Version 2)
Quarter: 2014Q1

REPORT INFORMATION
  Report Type: Report from Study
  Country: US (occurrence: US)
  Receive Date: 20130912
  Receipt Date: 20140321
  Transmission Date: 20141002
  Serious: Yes (Other)
  Sender: FDA-Public Use
  Company Number: US-PFIZER INC-2013257407

PATIENT
  Age: 67 Year
  Sex: Female

DRUGS (2)
  1. SOLU-MEDROL [Suspect]
     Dosage: UNK
  2. COPAXONE [Suspect]
     Indication: MULTIPLE SCLEROSIS
     Dosage: 20 MG, UNK
     Route: 058
     Dates: start: 20010410

REACTIONS (7)
  - Skin cancer [Recovered/Resolved]
  - Hypertension [Unknown]
  - Multiple sclerosis relapse [Recovered/Resolved]
  - Cerebrovascular accident [Unknown]
  - Abasia [Recovered/Resolved]
  - Flushing [Unknown]
  - Rash [Unknown]
